FAERS Safety Report 6164207-8 (Version None)
Quarter: 2009Q2

REPORT INFORMATION
  Report Type: 
  Country: None (occurrence: None)
  Receive Date: 20090422
  Receipt Date: 20090413
  Transmission Date: 20091009
  Serious: Yes (Hospitalization)
  Sender: FDA-Public Use
  Company Number: US-WYE-H08942809

PATIENT
  Sex: Male
  Weight: 88.53 kg

DRUGS (1)
  1. PRISTIQ [Suspect]
     Indication: ATTENTION DEFICIT/HYPERACTIVITY DISORDER
     Route: 048
     Dates: start: 20090101

REACTIONS (1)
  - CEREBROVASCULAR ACCIDENT [None]
